FAERS Safety Report 13375115 (Version 2)
Quarter: 2017Q2

REPORT INFORMATION
  Report Type: Spontaneous
  Country: US (occurrence: US)
  Receive Date: 20170327
  Receipt Date: 20170410
  Transmission Date: 20170830
  Serious: Yes (Other)
  Sender: FDA-Public Use
  Company Number: US-PFIZER INC-2017129788

PATIENT
  Age: 8 Year
  Sex: Male
  Weight: 17 kg

DRUGS (5)
  1. GENOTROPIN MQ [Suspect]
     Active Substance: SOMATROPIN
     Indication: GROWTH RETARDATION
  2. GENOTROPIN MQ [Suspect]
     Active Substance: SOMATROPIN
     Indication: DEVELOPMENTAL DELAY
  3. FOCALIN [Concomitant]
     Active Substance: DEXMETHYLPHENIDATE HYDROCHLORIDE
     Indication: ATTENTION DEFICIT/HYPERACTIVITY DISORDER
     Dosage: 10 MG, 1X/DAY
     Route: 048
  4. GENOTROPIN MQ [Suspect]
     Active Substance: SOMATROPIN
     Indication: GROWTH HORMONE DEFICIENCY
     Dosage: 1 MG, WEEKLY (X6/WEEK AT NIGHT TIME)
     Route: 058
     Dates: start: 201604
  5. TOLMETIN [Concomitant]
     Active Substance: TOLMETIN
     Dosage: UNK

REACTIONS (9)
  - Asterixis [Unknown]
  - Bone development abnormal [Unknown]
  - Enuresis [Unknown]
  - Abnormal behaviour [Unknown]
  - Diarrhoea [Unknown]
  - Abdominal pain [Unknown]
  - Sinusitis [Unknown]
  - Visual impairment [Unknown]
  - Drug ineffective [Unknown]
